FAERS Safety Report 5936457-4 (Version None)
Quarter: 2008Q4

REPORT INFORMATION
  Report Type: 
  Country: None (occurrence: None)
  Receive Date: 20081030
  Receipt Date: 20081021
  Transmission Date: 20090506
  Serious: Yes (Death)
  Sender: FDA-Public Use
  Company Number: FR-ROCHE-579414

PATIENT
  Sex: Female
  Weight: 68 kg

DRUGS (4)
  1. CAPECITABINE [Suspect]
     Dosage: FREQUENCY: 2X/DAY FROM DAY 1 TO 14. LAST DOSE PRIOR TO SAE: JULY 2008.
     Route: 048
     Dates: start: 20080722, end: 20080730
  2. TAXOTERE [Suspect]
     Dosage: FREQUENCY REPORTED ON DAY ONE.
     Route: 042
     Dates: start: 20080722, end: 20080722
  3. ESCITALOPRAM [Concomitant]
     Indication: MENTAL DISORDER
     Route: 048
     Dates: start: 20080101, end: 20080730
  4. SEROPLEX [Concomitant]
     Dosage: START DATE REPORTED SINCE THE BEGINNING OF THE YEAR.

REACTIONS (1)
  - DEATH [None]
